FAERS Safety Report 21201206 (Version 5)
Quarter: 2022Q4

REPORT INFORMATION
  Report Type: Spontaneous
  Country: CA (occurrence: CA)
  Receive Date: 20220811
  Receipt Date: 20221020
  Transmission Date: 20230113
  Serious: Yes (Other)
  Sender: FDA-Public Use
  Company Number: CA-PFIZER INC-202201046066

PATIENT
  Age: 38 Year
  Sex: Female

DRUGS (3)
  1. ABRILADA [Suspect]
     Active Substance: ADALIMUMAB-AFZB
     Indication: Crohn^s disease
     Dosage: 1 DF, PREFILLED PEN, WEEK 0: 160MG WEEK 2: 80MG 40MG EVERY OTHER WEEK
     Route: 058
     Dates: start: 202207
  2. ABRILADA [Suspect]
     Active Substance: ADALIMUMAB-AFZB
     Dosage: 80 MG, SUPPOSED TO HAVE SWITCHED TO 40 MG EVERY OTHER WEEK
     Route: 058
     Dates: start: 2022
  3. ABRILADA [Suspect]
     Active Substance: ADALIMUMAB-AFZB
     Dosage: 40 MG, WEEKLY, NOT STARTED YET
     Route: 058

REACTIONS (4)
  - Gastric disorder [Not Recovered/Not Resolved]
  - Melaena [Recovered/Resolved]
  - Off label use [Unknown]
  - Incorrect dose administered [Unknown]

NARRATIVE: CASE EVENT DATE: 20220101
